FAERS Safety Report 23520033 (Version 1)
Quarter: 2024Q1

REPORT INFORMATION
  Report Type: Spontaneous
  Country: US (occurrence: US)
  Receive Date: 20240214
  Receipt Date: 20240214
  Transmission Date: 20240409
  Serious: Yes (Hospitalization)
  Sender: FDA-Public Use
  Company Number: US-BMS-IMIDS-REMS_SI-11220527

PATIENT
  Sex: Female

DRUGS (1)
  1. LENALIDOMIDE [Suspect]
     Active Substance: LENALIDOMIDE
     Indication: Product used for unknown indication
     Route: 048

REACTIONS (4)
  - Blood electrolytes abnormal [Unknown]
  - Asthenia [Unknown]
  - Gait disturbance [Unknown]
  - Off label use [Unknown]
